FAERS Safety Report 6953299-1 (Version None)
Quarter: 2010Q3

REPORT INFORMATION
  Report Type: 
  Country: None (occurrence: None)
  Receive Date: 20100829
  Receipt Date: 20100603
  Transmission Date: 20110219
  Serious: No
  Sender: FDA-Public Use
  Company Number: US-ABBOTT-10P-163-0648882-00

PATIENT
  Sex: Male
  Weight: 95.34 kg

DRUGS (3)
  1. NIASPAN [Suspect]
     Indication: BLOOD CHOLESTEROL
     Dosage: AT BED TIME
     Dates: start: 20100501
  2. BLOOD PRESSURE MEDICATION [Concomitant]
     Indication: PRODUCT USED FOR UNKNOWN INDICATION
  3. ASPIRIN [Concomitant]
     Indication: PRODUCT USED FOR UNKNOWN INDICATION

REACTIONS (6)
  - CHILLS [None]
  - HOT FLUSH [None]
  - JOINT STIFFNESS [None]
  - NAUSEA [None]
  - OEDEMA PERIPHERAL [None]
  - SWELLING FACE [None]
